FAERS Safety Report 14252402 (Version 3)
Quarter: 2018Q3

REPORT INFORMATION
  Report Type: Spontaneous
  Country: FR (occurrence: FR)
  Receive Date: 20171205
  Receipt Date: 20180713
  Transmission Date: 20181010
  Serious: Yes (Hospitalization, Other)
  Sender: FDA-Public Use
  Company Number: FR-PFIZER INC-2017513653

PATIENT
  Age: 62 Year
  Sex: Male

DRUGS (13)
  1. TAHOR [Suspect]
     Active Substance: ATORVASTATIN CALCIUM
     Dosage: 40 MG, DAILY
     Route: 048
     Dates: end: 20171019
  2. TAHOR [Suspect]
     Active Substance: ATORVASTATIN CALCIUM
     Dosage: 40 MG, DAILY
     Route: 048
     Dates: start: 20171019, end: 2017
  3. DIFFU?K [Suspect]
     Active Substance: POTASSIUM CHLORIDE
     Dosage: UNK
     Route: 048
     Dates: start: 20171019, end: 2017
  4. SEROPLEX [Suspect]
     Active Substance: ESCITALOPRAM OXALATE
     Dosage: UNK
     Route: 048
     Dates: start: 20171019
  5. KARDEGIC [Concomitant]
     Active Substance: ASPIRIN DL-LYSINE
     Dosage: 75 MG, DAILY
  6. BISOPROLOL FUMARATE. [Suspect]
     Active Substance: BISOPROLOL FUMARATE
     Dosage: 2 DF, DAILY (3.25 MG IN THE MORNING AND 2.5 MG IN THE EVENING)
     Route: 048
     Dates: start: 20171019
  7. SEROPLEX [Suspect]
     Active Substance: ESCITALOPRAM OXALATE
     Dosage: 5 MG, DAILY
     Route: 048
     Dates: end: 20171019
  8. BISOPROLOL FUMARATE. [Suspect]
     Active Substance: BISOPROLOL FUMARATE
     Dosage: UNK
     Route: 065
     Dates: start: 20171019
  9. LACTIBIANE (PROBIOTIC) [Suspect]
     Active Substance: PROBIOTICS NOS
     Dosage: UNK
     Route: 065
  10. BRILIQUE [Suspect]
     Active Substance: TICAGRELOR
     Dosage: 90 MG, 2X/DAY
     Route: 048
     Dates: start: 20171019
  11. BRILIQUE [Suspect]
     Active Substance: TICAGRELOR
     Dosage: 90 MG, 2X/DAY
     Route: 048
     Dates: end: 20171019
  12. INEXIUM [Concomitant]
     Active Substance: ESOMEPRAZOLE
     Dosage: 20 MG, DAILY
  13. TRIATEC (RAMIPRIL) [Suspect]
     Active Substance: RAMIPRIL
     Dosage: 2.5 MG, 2X/DAY
     Route: 048
     Dates: start: 20171019, end: 2017

REACTIONS (10)
  - Sinus bradycardia [Recovered/Resolved]
  - Vomiting [None]
  - Bundle branch block right [Not Recovered/Not Resolved]
  - Electrocardiogram QRS complex prolonged [Recovered/Resolved]
  - Hyperkalaemia [Recovered/Resolved]
  - Haematuria [Recovered/Resolved]
  - Bradypnoea [Recovered/Resolved]
  - Intentional overdose [Not Recovered/Not Resolved]
  - Somnolence [Recovered/Resolved]
  - Diarrhoea [None]

NARRATIVE: CASE EVENT DATE: 201710
